FAERS Safety Report 5939561-X (Version None)
Quarter: 2008Q4

REPORT INFORMATION
  Report Type: 
  Country: None (occurrence: None)
  Receive Date: 20081029
  Receipt Date: 20081015
  Transmission Date: 20090506
  Serious: Yes (Other)
  Sender: FDA-Public Use
  Company Number: 100#08#2008-05298

PATIENT
  Age: 79 Year
  Sex: Male

DRUGS (5)
  1. DOXYCYCLINE (DOXYCYCLINE) [Suspect]
     Indication: DEVICE RELATED INFECTION
  2. VANCOMYCIN [Suspect]
     Indication: DEVICE RELATED INFECTION
  3. MEROPENEM (MEROPENEM) [Suspect]
     Indication: DEVICE RELATED INFECTION
  4. PRISTINAMYCIN (PRISTINAMYCIN) [Concomitant]
  5. FUSIDIC ACID [Concomitant]

REACTIONS (1)
  - DRUG INTOLERANCE [None]
